FAERS Safety Report 16328095 (Version 2)
Quarter: 2025Q3

REPORT INFORMATION
  Report Type: Spontaneous
  Country: EU (occurrence: EU)
  Receive Date: 20190518
  Receipt Date: 20250722
  Transmission Date: 20251021
  Serious: Yes (Life-Threatening, Hospitalization, Other)
  Sender: AUROBINDO
  Company Number: EU-AUROBINDO-AUR-APL-2019-025711

PATIENT
  Age: 19 Year
  Sex: Female

DRUGS (10)
  1. ACETAMINOPHEN [Suspect]
     Active Substance: ACETAMINOPHEN
     Indication: Product used for unknown indication
     Route: 065
  2. AZATHIOPRINE [Suspect]
     Active Substance: AZATHIOPRINE
     Indication: Crohn^s disease
     Dosage: DAILY DOSE: 150 MG MILLIGRAM(S) EVERY DAY
     Route: 065
     Dates: start: 201312, end: 201403
  3. AZATHIOPRINE [Suspect]
     Active Substance: AZATHIOPRINE
     Indication: Immunosuppression
     Route: 065
     Dates: end: 201403
  4. ADALIMUMAB [Suspect]
     Active Substance: ADALIMUMAB
     Indication: Immunosuppression
     Dosage: DAILY DOSE: 160 MG MILLIGRAM(S) EVERY DAY
     Route: 065
     Dates: start: 201402, end: 201402
  5. ADALIMUMAB [Suspect]
     Active Substance: ADALIMUMAB
     Dosage: 80 MILLIGRAM, ONCE A DAY
     Route: 065
     Dates: start: 2014, end: 201403
  6. PREDNISOLONE [Suspect]
     Active Substance: PREDNISOLONE
     Indication: Immunosuppression
     Route: 065
  7. PREDNISOLONE [Suspect]
     Active Substance: PREDNISOLONE
     Indication: Crohn^s disease
     Dosage: DAILY DOSE: 25 MG MILLIGRAM(S) EVERY DAY
     Route: 065
     Dates: start: 201402
  8. SULFAMETHOXAZOLE\TRIMETHOPRIM [Suspect]
     Active Substance: SULFAMETHOXAZOLE\TRIMETHOPRIM
     Indication: Prophylaxis
     Route: 065
     Dates: start: 201402, end: 201403
  9. ACETYLCYSTEINE [Concomitant]
     Active Substance: ACETYLCYSTEINE
     Indication: Product used for unknown indication
     Route: 065
     Dates: start: 201403
  10. ACETAMINOPHEN [Concomitant]
     Active Substance: ACETAMINOPHEN
     Indication: Product used for unknown indication
     Route: 065

REACTIONS (36)
  - Abdominal pain [Unknown]
  - Alanine aminotransferase increased [Recovered/Resolved]
  - Biopsy liver abnormal [Recovered/Resolved]
  - Alanine aminotransferase increased [Unknown]
  - Hepatic necrosis [Recovered/Resolved]
  - Transaminases increased [Unknown]
  - Malaise [Unknown]
  - General physical health deterioration [Recovered/Resolved]
  - Sepsis [Recovering/Resolving]
  - Herpes simplex [Recovering/Resolving]
  - Immunosuppression [Recovered/Resolved]
  - Aspartate aminotransferase increased [Recovered/Resolved]
  - Herpes virus infection [Unknown]
  - Hepatic cytolysis [Recovered/Resolved]
  - Skin erosion [Recovered/Resolved]
  - Coagulopathy [Recovered/Resolved]
  - Hepatitis [Unknown]
  - Crohn^s disease [Unknown]
  - Herpes simplex sepsis [Recovered/Resolved]
  - Lymphocytic infiltration [Recovered/Resolved]
  - Herpes simplex [Recovering/Resolving]
  - Hepatitis viral [Recovered/Resolved]
  - Herpes virus infection [Recovered/Resolved]
  - Hepatitis viral [Recovered/Resolved]
  - Abdominal tenderness [Unknown]
  - Herpes simplex hepatitis [Recovered/Resolved]
  - Herpes simplex sepsis [Recovered/Resolved]
  - International normalised ratio decreased [Recovered/Resolved]
  - Skin lesion [Recovered/Resolved]
  - International normalised ratio increased [Unknown]
  - C-reactive protein increased [Recovered/Resolved]
  - Pyrexia [Unknown]
  - C-reactive protein increased [Unknown]
  - Prothrombin level abnormal [Recovered/Resolved]
  - Pancytopenia [Unknown]
  - Hepatitis viral [Recovering/Resolving]

NARRATIVE: CASE EVENT DATE: 20140101
